FAERS Safety Report 23549586 (Version 1)
Quarter: 2024Q1

REPORT INFORMATION
  Report Type: Spontaneous
  Country: US (occurrence: US)
  Receive Date: 20240221
  Receipt Date: 20240221
  Transmission Date: 20240410
  Serious: Yes (Hospitalization)
  Sender: FDA-Public Use
  Company Number: US-SA-SAC20240220000044

PATIENT
  Age: 11 Month
  Sex: Female
  Weight: 7.7 kg

DRUGS (1)
  1. DUPIXENT [Suspect]
     Active Substance: DUPILUMAB
     Indication: Illness
     Dosage: 200 MG, Q4W
     Route: 058

REACTIONS (3)
  - Influenza [Unknown]
  - Eczema [Unknown]
  - Skin irritation [Unknown]

NARRATIVE: CASE EVENT DATE: 20240102
